FAERS Safety Report 24977294 (Version 2)
Quarter: 2025Q2

REPORT INFORMATION
  Report Type: Spontaneous
  Country: US (occurrence: US)
  Receive Date: 20250217
  Receipt Date: 20250608
  Transmission Date: 20250717
  Serious: Yes (Death, Hospitalization)
  Sender: COHERUS
  Company Number: US-COHERUS BIOSCIENCES, INC-2025-COH-US000097

PATIENT

DRUGS (2)
  1. UDENYCA [Suspect]
     Active Substance: PEGFILGRASTIM-CBQV
     Indication: Prophylaxis
     Dates: start: 20240627, end: 20240627
  2. UDENYCA [Suspect]
     Active Substance: PEGFILGRASTIM-CBQV
     Dates: start: 20241128, end: 20241128

REACTIONS (4)
  - Blood loss anaemia [Fatal]
  - Gastric ulcer [Unknown]
  - Gastritis erosive [Unknown]
  - Obstruction gastric [Unknown]

NARRATIVE: CASE EVENT DATE: 20241217
